FAERS Safety Report 20585984 (Version 1)
Quarter: 2022Q1

REPORT INFORMATION
  Report Type: Spontaneous
  Country: US (occurrence: US)
  Receive Date: 20220312
  Receipt Date: 20220312
  Transmission Date: 20220424
  Serious: No
  Sender: FDA-Public Use
  Company Number: US-AMGEN-USASP2022037900

PATIENT
  Sex: Female

DRUGS (1)
  1. XGEVA [Suspect]
     Active Substance: DENOSUMAB
     Indication: Osteopenia
     Dosage: 120 MILLIGRAM
     Route: 065
     Dates: start: 20200108

REACTIONS (2)
  - Dental care [Unknown]
  - Off label use [Unknown]
